FAERS Safety Report 5596212-4 (Version None)
Quarter: 2008Q1

REPORT INFORMATION
  Report Type: 
  Country: None (occurrence: None)
  Receive Date: 20080118
  Receipt Date: 20080108
  Transmission Date: 20080703
  Serious: Yes (Hospitalization)
  Sender: FDA-Public Use
  Company Number: ES-ABBOTT-08P-144-0432595-00

PATIENT
  Age: 55 Year
  Sex: Male

DRUGS (3)
  1. HUMIRA [Suspect]
     Indication: CROHN'S DISEASE
     Route: 058
     Dates: start: 20071224, end: 20071224
  2. HUMIRA [Suspect]
     Route: 058
     Dates: start: 20071231, end: 20071231
  3. AZATIPRINA [Concomitant]
     Indication: CROHN'S DISEASE
     Route: 048
     Dates: start: 20071224

REACTIONS (5)
  - ARTHRALGIA [None]
  - CHILLS [None]
  - OEDEMA [None]
  - PROTEINURIA [None]
  - RENAL FAILURE ACUTE [None]
